FAERS Safety Report 9252075 (Version 2)
Quarter: 2013Q4

REPORT INFORMATION
  Report Type: Report from Study
  Country: DE (occurrence: DE)
  Receive Date: 20130424
  Receipt Date: 20131203
  Transmission Date: 20140711
  Serious: Yes (Hospitalization)
  Sender: FDA-Public Use
  Company Number: DE-AMGEN-DEUCT2013028513

PATIENT
  Age: 66 Year
  Sex: Male

DRUGS (12)
  1. ETANERCEPT [Suspect]
     Indication: PRODUCT USED FOR UNKNOWN INDICATION
     Dosage: 50 MG, EVERY 7 DAYS
     Route: 065
  2. CANDESARTAN [Concomitant]
     Dosage: UNK
  3. TORASEMIDE [Concomitant]
     Dosage: UNK
  4. METAMIZOLE [Concomitant]
     Dosage: UNK
  5. CPS [Concomitant]
     Dosage: UNK
  6. SODIUM HYDROCARBONATE [Concomitant]
     Dosage: UNK
  7. CALCIUM + VIT D [Concomitant]
     Dosage: UNK
  8. ALLOPURINOL [Concomitant]
     Dosage: UNK
  9. MOXONIDINE [Concomitant]
     Dosage: UNK
  10. AMLODIPINE [Concomitant]
     Dosage: UNK
  11. DIGOXIN [Concomitant]
     Dosage: UNK
  12. ASS [Concomitant]
     Dosage: UNK

REACTIONS (1)
  - Diabetic end stage renal disease [Recovered/Resolved]
